FAERS Safety Report 15375127 (Version 2)
Quarter: 2019Q1

REPORT INFORMATION
  Report Type: Spontaneous
  Country: IT (occurrence: IT)
  Receive Date: 20180912
  Receipt Date: 20190328
  Transmission Date: 20190417
  Serious: Yes (Disabling)
  Sender: FDA-Public Use
  Company Number: IT-TEVA-2018-IT-954069

PATIENT
  Age: 73 Year
  Sex: Male

DRUGS (10)
  1. PAMIDRONATE DISODIUM. [Suspect]
     Active Substance: PAMIDRONATE DISODIUM
     Indication: PROSTATE CANCER METASTATIC
     Route: 042
     Dates: start: 20180320, end: 20180719
  2. TRIPTORELIN [Concomitant]
     Active Substance: TRIPTORELIN
     Indication: PROSTATE CANCER METASTATIC
     Route: 065
  3. DOCETAXEL. [Concomitant]
     Active Substance: DOCETAXEL
     Indication: PROSTATE CANCER METASTATIC
     Route: 042
     Dates: start: 20170901, end: 20180320
  4. DELTACORTENE 5 MG COMPRESSE [Concomitant]
     Active Substance: PREDNISONE
     Route: 048
  5. XOFIGO 1100 KBQ/ML SOLUTION FOR INJECTION [Concomitant]
     Indication: PROSTATE CANCER METASTATIC
     Route: 065
     Dates: start: 20170222, end: 20170810
  6. CARDIOASPIRIN 100 MG COMPRESSE GASTRORESISTENTI [Concomitant]
     Active Substance: ASPIRIN
     Indication: HYPERTENSIVE CARDIOMYOPATHY
     Route: 048
  7. SELOKEN 100 MG COMPRESSE [Concomitant]
     Active Substance: METOPROLOL
     Indication: HYPERTENSIVE CARDIOMYOPATHY
     Route: 048
  8. TORVAST 20 MG COMPRESSE RIVESTITE CON FILM [Concomitant]
     Route: 048
  9. TARGIN 10 MG/5MG COMPRESSE A RILASCIO PROLUNGATO [Concomitant]
     Route: 048
  10. LANSOPRAZOLE. [Concomitant]
     Active Substance: LANSOPRAZOLE
     Route: 048

REACTIONS (3)
  - Gingivitis [Not Recovered/Not Resolved]
  - Osteonecrosis of jaw [Not Recovered/Not Resolved]
  - Fistula [Not Recovered/Not Resolved]

NARRATIVE: CASE EVENT DATE: 20180521
